FAERS Safety Report 9392397 (Version 1)
Quarter: 2013Q3

REPORT INFORMATION
  Report Type: Spontaneous
  Country: US (occurrence: None)
  Receive Date: 20130708
  Receipt Date: 20130708
  Transmission Date: 20140515
  Serious: Yes (Other)
  Sender: FDA-Public Use
  Company Number: None

PATIENT
  Age: 89 Year
  Sex: Female
  Weight: 73.94 kg

DRUGS (15)
  1. BUPROPION [Suspect]
     Route: 048
  2. BUPROPION SR [Concomitant]
  3. CLOPIDOGREL [Concomitant]
  4. ESCITALOPRAM [Concomitant]
  5. PLAVIX [Concomitant]
  6. WELLBUTRIN [Suspect]
     Indication: DEPRESSION
  7. PROTONIX [Concomitant]
  8. CARTIA [Concomitant]
  9. SIMVASTATIN [Concomitant]
  10. LOVAZA [Concomitant]
  11. FOSAMAX [Concomitant]
  12. LEXAPRO [Concomitant]
     Indication: DEPRESSION
  13. ASPIRIN [Concomitant]
  14. MULIVITAMIN [Concomitant]
  15. MILK OF MAGNESIA [Concomitant]

REACTIONS (6)
  - Anxiety [None]
  - Depression [None]
  - Product substitution issue [None]
  - Product quality issue [None]
  - Product odour abnormal [None]
  - Product substitution issue [None]
